FAERS Safety Report 6408757-5 (Version None)
Quarter: 2009Q4

REPORT INFORMATION
  Report Type: 
  Country: None (occurrence: None)
  Receive Date: 20091021
  Receipt Date: 20091016
  Transmission Date: 20100525
  Serious: Yes (Other)
  Sender: FDA-Public Use
  Company Number: A0802338A

PATIENT
  Age: 65 Year
  Sex: Female

DRUGS (5)
  1. TYKERB [Suspect]
     Dosage: 250MG UNKNOWN
     Route: 048
     Dates: start: 20080701
  2. XELODA [Suspect]
     Route: 065
     Dates: start: 20080701
  3. ZOMETA [Suspect]
     Route: 065
     Dates: start: 20080701
  4. HERCEPTIN [Concomitant]
  5. DOXORUBICIN HCL [Concomitant]

REACTIONS (3)
  - METASTASES TO BONE [None]
  - METASTASES TO LIVER [None]
  - RASH [None]
